FAERS Safety Report 7883020-4 (Version None)
Quarter: 2011Q4

REPORT INFORMATION
  Report Type: 
  Country: None (occurrence: None)
  Receive Date: 20111102
  Receipt Date: 20111025
  Transmission Date: 20120403
  Serious: Yes (Hospitalization)
  Sender: FDA-Public Use
  Company Number: US-BIOGENIDEC-2011BI032542

PATIENT
  Age: 45 Year
  Sex: Female

DRUGS (1)
  1. TYSABRI [Suspect]
     Indication: MULTIPLE SCLEROSIS
     Route: 042
     Dates: start: 20110323

REACTIONS (8)
  - INTRACRANIAL HYPOTENSION [None]
  - HEADACHE [None]
  - LACERATION [None]
  - STAPHYLOCOCCAL INFECTION [None]
  - BALANCE DISORDER [None]
  - FALL [None]
  - MULTIPLE SCLEROSIS RELAPSE [None]
  - DIZZINESS [None]
